FAERS Safety Report 18719217 (Version 1)
Quarter: 2021Q1

REPORT INFORMATION
  Report Type: Spontaneous
  Country: FR (occurrence: FR)
  Receive Date: 20210108
  Receipt Date: 20210108
  Transmission Date: 20210419
  Serious: Yes (Hospitalization)
  Sender: FDA-Public Use
  Company Number: FR-TEVA-2021-FR-1866297

PATIENT
  Age: 40 Year
  Sex: Male

DRUGS (3)
  1. METHADONE AP?HP [Suspect]
     Active Substance: METHADONE HYDROCHLORIDE
     Route: 065
  2. DIAZEPAM. [Suspect]
     Active Substance: DIAZEPAM
     Route: 065
  3. BUPRENORPHINE. [Suspect]
     Active Substance: BUPRENORPHINE
     Route: 065

REACTIONS (3)
  - Coma [Recovered/Resolved with Sequelae]
  - Eschar [Recovering/Resolving]
  - Encephalopathy [Recovered/Resolved with Sequelae]
